FAERS Safety Report 25144831 (Version 1)
Quarter: 2025Q1

REPORT INFORMATION
  Report Type: Spontaneous
  Country: US (occurrence: None)
  Receive Date: 20250331
  Receipt Date: 20250331
  Transmission Date: 20250409
  Serious: Yes (Hospitalization)
  Sender: FDA-CTU
  Company Number: None

PATIENT
  Age: 44 Year
  Sex: Female
  Weight: 54 kg

DRUGS (1)
  1. RIBOCICLIB [Suspect]
     Active Substance: RIBOCICLIB
     Indication: Breast cancer
     Dosage: FREQUENCY : DAILY;?
     Route: 048
     Dates: start: 20241204, end: 20250304

REACTIONS (6)
  - Hepatitis acute [None]
  - Fatigue [None]
  - Hepatic necrosis [None]
  - Therapy cessation [None]
  - Haemophagocytic lymphohistiocytosis [None]
  - Eosinophil count abnormal [None]

NARRATIVE: CASE EVENT DATE: 20250310
